FAERS Safety Report 4570382-9 (Version None)
Quarter: 2005Q1

REPORT INFORMATION
  Report Type: 
  Country: None (occurrence: None)
  Receive Date: 20050204
  Receipt Date: 20050126
  Transmission Date: 20050727
  Serious: Yes (Death, Congenital Anomaly)
  Sender: FDA-Public Use
  Company Number: GB-JNJFOC-20050107077

PATIENT

DRUGS (1)
  1. SPORANOX [Suspect]
     Indication: DRUG USE FOR UNKNOWN INDICATION
     Route: 015

REACTIONS (3)
  - ANENCEPHALY [None]
  - CONGENITAL ANOMALY [None]
  - DRUG EXPOSURE DURING PREGNANCY [None]
